FAERS Safety Report 9254993 (Version 3)
Quarter: 2014Q1

REPORT INFORMATION
  Report Type: Spontaneous
  Country: US (occurrence: US)
  Receive Date: 20130425
  Receipt Date: 20140103
  Transmission Date: 20141002
  Serious: Yes (Other)
  Sender: FDA-Public Use
  Company Number: US-ASTRAZENECA-2013SE27685

PATIENT
  Age: 19427 Day
  Sex: Female
  Weight: 96.6 kg

DRUGS (13)
  1. NEXIUM [Suspect]
     Indication: HIATUS HERNIA
     Dosage: ONCE A DAY
     Route: 048
  2. NEXIUM [Suspect]
     Indication: GASTROOESOPHAGEAL REFLUX DISEASE
     Dosage: ONCE A DAY
     Route: 048
  3. NEXIUM [Suspect]
     Indication: HIATUS HERNIA
     Route: 048
     Dates: start: 20030225
  4. NEXIUM [Suspect]
     Indication: GASTROOESOPHAGEAL REFLUX DISEASE
     Route: 048
     Dates: start: 20030225
  5. NEXIUM [Suspect]
     Indication: HIATUS HERNIA
     Route: 048
     Dates: start: 2003, end: 2005
  6. NEXIUM [Suspect]
     Indication: GASTROOESOPHAGEAL REFLUX DISEASE
     Route: 048
     Dates: start: 2003, end: 2005
  7. OMEPRAZOLE [Suspect]
     Dosage: 20 MG 1 OR 2 TIMES
     Route: 048
     Dates: start: 2006
  8. OMEPRAZOLE [Suspect]
     Dosage: 20 MG 1 TAB PO DAILY 30 MINUTES BEFORE BREAKFAST
     Route: 048
     Dates: start: 20081006
  9. TAGAMET [Concomitant]
  10. PEPTO BISMOL [Concomitant]
  11. SIMVASTATIN [Concomitant]
  12. ATENENOL [Concomitant]
  13. NAPROSIN [Concomitant]

REACTIONS (17)
  - Suicidal ideation [Unknown]
  - Diabetes mellitus inadequate control [Unknown]
  - Diabetic retinopathy [Unknown]
  - Diabetic neuropathy [Unknown]
  - Osteoporosis [Unknown]
  - Bone disorder [Unknown]
  - Ankle fracture [Unknown]
  - Urinary incontinence [Unknown]
  - Type 2 diabetes mellitus [Unknown]
  - Vitamin D deficiency [Unknown]
  - Type V hyperlipidaemia [Unknown]
  - Tendonitis [Unknown]
  - Intervertebral disc degeneration [Unknown]
  - Dry eye [Unknown]
  - Osteoarthritis [Unknown]
  - Depression [Unknown]
  - Major depression [Unknown]
